FAERS Safety Report 22084637 (Version 2)
Quarter: 2023Q1

REPORT INFORMATION
  Report Type: Spontaneous
  Country: RO (occurrence: RO)
  Receive Date: 20230310
  Receipt Date: 20230324
  Transmission Date: 20230418
  Serious: Yes (Other)
  Sender: FDA-Public Use
  Company Number: RO-BAYER-2023A029808

PATIENT
  Sex: Female

DRUGS (1)
  1. MIRENA [Suspect]
     Active Substance: LEVONORGESTREL
     Dosage: 20?G/DAY
     Route: 015
     Dates: start: 20230216, end: 20230216

REACTIONS (3)
  - Device breakage [None]
  - Complication of device insertion [None]
  - Device defective [None]

NARRATIVE: CASE EVENT DATE: 20230216
